FAERS Safety Report 7536748-X (Version None)
Quarter: 2011Q2

REPORT INFORMATION
  Report Type: 
  Country: None (occurrence: None)
  Receive Date: 20110609
  Receipt Date: 20110603
  Transmission Date: 20111010
  Serious: Yes (Hospitalization)
  Sender: FDA-Public Use
  Company Number: B0725048A

PATIENT
  Age: 58 Year
  Sex: Female

DRUGS (1)
  1. AVANDIA [Suspect]
     Indication: DIABETES MELLITUS
     Dosage: 8MG PER DAY
     Route: 048
     Dates: start: 19990101, end: 20010101

REACTIONS (5)
  - MYOCARDIAL INFARCTION [None]
  - PAIN [None]
  - INFECTION [None]
  - CARDIOVASCULAR DISORDER [None]
  - TOE AMPUTATION [None]
